FAERS Safety Report 12492380 (Version 1)
Quarter: 2016Q2

REPORT INFORMATION
  Report Type: Spontaneous
  Country: FR (occurrence: FR)
  Receive Date: 20160623
  Receipt Date: 20160623
  Transmission Date: 20160815
  Serious: Yes (Hospitalization)
  Sender: FDA-Public Use
  Company Number: FR-PFIZER INC-2016300947

PATIENT
  Age: 56 Year
  Sex: Male

DRUGS (6)
  1. CARBOPLATINE HOSPIRA [Suspect]
     Active Substance: CARBOPLATIN
     Dosage: UNK, CYCLE 2
     Route: 042
     Dates: start: 20160414
  2. ALIMTA [Suspect]
     Active Substance: PEMETREXED DISODIUM
     Dosage: UNK, CYCLE 3
     Route: 042
     Dates: start: 20160504
  3. ALIMTA [Suspect]
     Active Substance: PEMETREXED DISODIUM
     Dosage: UNK, CYCLE 2
     Route: 042
     Dates: start: 20160414
  4. CARBOPLATINE HOSPIRA [Suspect]
     Active Substance: CARBOPLATIN
     Indication: LUNG NEOPLASM MALIGNANT
     Dosage: UNK UNK, CYCLE 1
     Route: 042
     Dates: start: 20160324
  5. CARBOPLATINE HOSPIRA [Suspect]
     Active Substance: CARBOPLATIN
     Dosage: UNK, CYCLE 2
     Route: 042
     Dates: start: 20160504
  6. ALIMTA [Suspect]
     Active Substance: PEMETREXED DISODIUM
     Indication: LUNG NEOPLASM MALIGNANT
     Dosage: UNK, CYCLE 1
     Route: 042
     Dates: start: 20160324

REACTIONS (2)
  - Mixed liver injury [Not Recovered/Not Resolved]
  - Jaundice [Not Recovered/Not Resolved]

NARRATIVE: CASE EVENT DATE: 20160519
